FAERS Safety Report 24170432 (Version 2)
Quarter: 2024Q3

REPORT INFORMATION
  Report Type: Spontaneous
  Country: US (occurrence: US)
  Receive Date: 20240803
  Receipt Date: 20240902
  Transmission Date: 20241017
  Serious: No
  Sender: ROCHE
  Company Number: US-ROCHE-10000047332

PATIENT
  Sex: Female

DRUGS (2)
  1. XOLAIR PFS [Suspect]
     Active Substance: OMALIZUMAB
     Indication: Urticaria
     Route: 058
     Dates: start: 202406
  2. XOLAIR PFS [Suspect]
     Active Substance: OMALIZUMAB
     Indication: Angioedema

REACTIONS (2)
  - Weight increased [Unknown]
  - Arthralgia [Unknown]
